FAERS Safety Report 14693396 (Version 2)
Quarter: 2018Q2

REPORT INFORMATION
  Report Type: Spontaneous
  Country: US (occurrence: US)
  Receive Date: 20180329
  Receipt Date: 20180413
  Transmission Date: 20180711
  Serious: Yes (Hospitalization)
  Sender: FDA-Public Use
  Company Number: US-JNJFOC-20180335030

PATIENT
  Age: 58 Year
  Sex: Male

DRUGS (1)
  1. INVOKANA [Suspect]
     Active Substance: CANAGLIFLOZIN
     Indication: PRODUCT USED FOR UNKNOWN INDICATION
     Route: 048
     Dates: start: 20150115, end: 20160107

REACTIONS (4)
  - Diabetic foot [Recovering/Resolving]
  - Amputation [Unknown]
  - Osteomyelitis [Unknown]
  - Sepsis [Recovered/Resolved]

NARRATIVE: CASE EVENT DATE: 20150815
